FAERS Safety Report 15603116 (Version 1)
Quarter: 2018Q4

REPORT INFORMATION
  Report Type: Spontaneous
  Country: US (occurrence: US)
  Receive Date: 20181109
  Receipt Date: 20181109
  Transmission Date: 20190205
  Serious: No
  Sender: FDA-Public Use
  Company Number: US-BAYER-2018-208502

PATIENT
  Age: 37 Year
  Sex: Male
  Weight: 79 kg

DRUGS (2)
  1. BAYER ASPIRIN [Concomitant]
     Active Substance: ASPIRIN
     Dosage: UNK
  2. LOTRIMIN ULTRA ANTIFUNGAL [Suspect]
     Active Substance: BUTENAFINE HYDROCHLORIDE
     Indication: THERAPEUTIC SKIN CARE TOPICAL
     Dosage: UNK
     Route: 061
     Dates: start: 201810, end: 20181107

REACTIONS (3)
  - Drug ineffective for unapproved indication [Unknown]
  - Product use issue [None]
  - Drug ineffective [Unknown]

NARRATIVE: CASE EVENT DATE: 201810
